FAERS Safety Report 6606610-5 (Version None)
Quarter: 2010Q1

REPORT INFORMATION
  Report Type: 
  Country: None (occurrence: None)
  Receive Date: 20100226
  Receipt Date: 20100216
  Transmission Date: 20100710
  Serious: Yes (Hospitalization, Other)
  Sender: FDA-Public Use
  Company Number: DE-ELI_LILLY_AND_COMPANY-DE200912000048

PATIENT
  Age: 54 Year
  Sex: Male

DRUGS (2)
  1. ZYPREXA [Suspect]
     Indication: PSYCHOTIC DISORDER
     Dosage: 7.5 MG, UNKNOWN
     Route: 048
     Dates: end: 20090101
  2. ZYPREXA [Suspect]
     Dosage: 5 MG, UNK
     Dates: start: 20090101

REACTIONS (2)
  - GLIOMA [None]
  - GRAND MAL CONVULSION [None]
